FAERS Safety Report 25094620 (Version 3)
Quarter: 2025Q2

REPORT INFORMATION
  Report Type: Spontaneous
  Country: GR (occurrence: GR)
  Receive Date: 20250319
  Receipt Date: 20250502
  Transmission Date: 20250716
  Serious: Yes (Other)
  Sender: PFIZER
  Company Number: GR-TAKEDA-2025TUS026066

PATIENT
  Age: 62 Year
  Sex: Female

DRUGS (11)
  1. CONTROLOC [Suspect]
     Active Substance: PANTOPRAZOLE SODIUM
     Indication: Anticoagulant therapy
     Dosage: 40 MG, 1X/DAY
     Route: 048
     Dates: start: 202411
  2. CONTROLOC [Suspect]
     Active Substance: PANTOPRAZOLE SODIUM
     Route: 065
     Dates: start: 202412
  3. CONTROLOC [Suspect]
     Active Substance: PANTOPRAZOLE SODIUM
     Route: 065
  4. CANNABIDIOL [Suspect]
     Active Substance: CANNABIDIOL
     Indication: Depression
     Route: 065
  5. ASPIRIN [Concomitant]
     Active Substance: ASPIRIN
     Indication: Anticoagulant therapy
     Route: 065
  6. BISOPROLOL FUMARATE [Concomitant]
     Active Substance: BISOPROLOL FUMARATE
     Indication: Blood pressure abnormal
     Route: 065
  7. WARFARIN [Concomitant]
     Active Substance: WARFARIN
     Indication: Anticoagulant therapy
     Route: 065
  8. EZETIMIBE\ROSUVASTATIN [Concomitant]
     Active Substance: EZETIMIBE\ROSUVASTATIN
     Indication: Blood cholesterol abnormal
     Route: 065
  9. ZONISAMIDE [Concomitant]
     Active Substance: ZONISAMIDE
     Indication: Blood pressure abnormal
     Route: 065
  10. RAMIPRIL [Concomitant]
     Active Substance: RAMIPRIL
     Indication: Blood pressure abnormal
     Route: 065
  11. ZOLOFT [Concomitant]
     Active Substance: SERTRALINE HYDROCHLORIDE

REACTIONS (5)
  - Pericarditis [Unknown]
  - Depressed mood [Unknown]
  - Transaminases increased [Recovered/Resolved]
  - Off label use [Unknown]
  - Contraindicated product administered [Unknown]
